FAERS Safety Report 7633236-7 (Version None)
Quarter: 2011Q3

REPORT INFORMATION
  Report Type: 
  Country: None (occurrence: None)
  Receive Date: 20110718
  Receipt Date: 20110702
  Transmission Date: 20111222
  Serious: Yes (Other)
  Sender: FDA-Public Use
  Company Number: AUR-APL-2011-01105

PATIENT
  Age: 41 Year
  Sex: Male
  Weight: 94.1 kg

DRUGS (9)
  1. FLUTICASONE [Concomitant]
  2. BUDESONIDE [Concomitant]
  3. CRIZOTINIB [Suspect]
     Indication: NON-SMALL CELL LUNG CANCER
     Dosage: 500 MG (250 MG, 2 IN 1 D), ORAL
     Route: 048
     Dates: start: 20110204
  4. OMEPRAZOLE [Concomitant]
  5. BENAZEPRIL HYDROCHLORIDE [Suspect]
     Indication: HYPERTENSION
     Dosage: 10 MG (10 MG, 1 IN 1 D),
     Dates: start: 20070122
  6. ZYRTEC D (CETIRIZINE W/PSEUDOEPHEDRINE) [Concomitant]
  7. ROSUVASTATIN CALCIUM [Concomitant]
  8. LEVOTHYROXINE SODIUM [Concomitant]
  9. NIACIN [Concomitant]

REACTIONS (5)
  - OPTIC ATROPHY [None]
  - HYPOTENSION [None]
  - VISUAL FIELD DEFECT [None]
  - METAMORPHOPSIA [None]
  - OPTIC NERVE DISORDER [None]
